FAERS Safety Report 23558262 (Version 1)
Quarter: 2024Q1

REPORT INFORMATION
  Report Type: Spontaneous
  Country: CZ (occurrence: CZ)
  Receive Date: 20240223
  Receipt Date: 20240223
  Transmission Date: 20240410
  Serious: Yes (Life-Threatening, Hospitalization, Other)
  Sender: FDA-Public Use
  Company Number: CZ-MLMSERVICE-20240206-4787080-1

PATIENT
  Age: 73 Year
  Sex: Female

DRUGS (4)
  1. FLUOROURACIL [Suspect]
     Active Substance: FLUOROURACIL
     Indication: Rectal cancer stage II
     Dosage: CONTINUOUSLY D1-D4 DURING WEEKS 1 AND 5 OF RADIOTHERAPY
     Dates: start: 2022, end: 2022
  2. MITOMYCIN [Concomitant]
     Active Substance: MITOMYCIN
     Indication: Rectal cancer stage II
     Dosage: AT D1
     Dates: start: 2022
  3. MITOMYCIN [Concomitant]
     Active Substance: MITOMYCIN
     Indication: Anal squamous cell carcinoma
     Dosage: AT D1
     Dates: start: 2022
  4. FLUOROURACIL [Suspect]
     Active Substance: FLUOROURACIL
     Indication: Anal squamous cell carcinoma
     Dosage: CONTINUOUSLY D1-D4 DURING WEEKS 1 AND 5 OF RADIOTHERAPY
     Dates: start: 2022, end: 2022

REACTIONS (1)
  - Arteriospasm coronary [Recovering/Resolving]
